FAERS Safety Report 17920955 (Version 4)
Quarter: 2020Q3

REPORT INFORMATION
  Report Type: Report from Study
  Country: None (occurrence: US)
  Receive Date: 20200622
  Receipt Date: 20200820
  Transmission Date: 20201103
  Serious: No
  Sender: FDA-Public Use
  Company Number: US-ABBVIE-20K-163-3452277-00

PATIENT
  Sex: Male
  Weight: 138.47 kg

DRUGS (2)
  1. HUMIRA [Suspect]
     Active Substance: ADALIMUMAB
     Indication: ANKYLOSING SPONDYLITIS
     Route: 058
     Dates: start: 2019
  2. HUMIRA [Suspect]
     Active Substance: ADALIMUMAB
     Indication: HIDRADENITIS

REACTIONS (10)
  - Secretion discharge [Recovering/Resolving]
  - Exercise tolerance decreased [Not Recovered/Not Resolved]
  - Musculoskeletal stiffness [Not Recovered/Not Resolved]
  - Haematoma [Unknown]
  - Furuncle [Recovering/Resolving]
  - Fatigue [Not Recovered/Not Resolved]
  - Hepatitis C [Recovering/Resolving]
  - Drug ineffective [Unknown]
  - Wound complication [Recovering/Resolving]
  - Pain [Not Recovered/Not Resolved]
